FAERS Safety Report 23613124 (Version 1)
Quarter: 2024Q1

REPORT INFORMATION
  Report Type: Report from Study
  Country: GB (occurrence: None)
  Receive Date: 20240308
  Receipt Date: 20240308
  Transmission Date: 20240409
  Serious: Yes (Other)
  Sender: FDA-Public Use
  Company Number: 2024A053401

PATIENT
  Sex: Female

DRUGS (1)
  1. FASENRA [Suspect]
     Active Substance: BENRALIZUMAB
     Indication: Asthma
     Route: 058
     Dates: start: 202309

REACTIONS (4)
  - Deafness unilateral [Unknown]
  - Nasopharyngitis [Unknown]
  - Wheezing [Unknown]
  - Loss of consciousness [Unknown]
